FAERS Safety Report 18511738 (Version 2)
Quarter: 2020Q4

REPORT INFORMATION
  Report Type: Report from Study
  Country: CA (occurrence: CA)
  Receive Date: 20201117
  Receipt Date: 20201118
  Transmission Date: 20210114
  Serious: Yes (Disabling)
  Sender: FDA-Public Use
  Company Number: CA-JNJFOC-A-NJ2018-181410

PATIENT
  Age: 76 Year
  Sex: Female

DRUGS (18)
  1. UPTRAVI [Suspect]
     Active Substance: SELEXIPAG
     Indication: PULMONARY ARTERIAL HYPERTENSION
     Dosage: 800 MCG, BID
     Route: 048
  2. UPTRAVI [Suspect]
     Active Substance: SELEXIPAG
     Dosage: 400 MCG
     Route: 048
  3. UPTRAVI [Suspect]
     Active Substance: SELEXIPAG
     Dosage: 400 MCG, BID
     Route: 048
     Dates: start: 20181029
  4. PROLEAK [Concomitant]
  5. ADCIRCA [Concomitant]
     Active Substance: TADALAFIL
  6. CRESTOR [Concomitant]
     Active Substance: ROSUVASTATIN CALCIUM
  7. UPTRAVI [Suspect]
     Active Substance: SELEXIPAG
     Dosage: 600 MCG, BID
     Route: 048
  8. SPIRONOLACTONE. [Concomitant]
     Active Substance: SPIRONOLACTONE
  9. SYNTHROID [Concomitant]
     Active Substance: LEVOTHYROXINE SODIUM
  10. FUROSEMIDE. [Concomitant]
     Active Substance: FUROSEMIDE
  11. SULFASALAZINE. [Concomitant]
     Active Substance: SULFASALAZINE
  12. PROLIA [Concomitant]
     Active Substance: DENOSUMAB
  13. LANSOPRAZOLE. [Concomitant]
     Active Substance: LANSOPRAZOLE
  14. UPTRAVI [Suspect]
     Active Substance: SELEXIPAG
     Dosage: 200 MCG, BID
     Route: 048
     Dates: start: 20181126
  15. ASA [Concomitant]
     Active Substance: ASPIRIN
  16. EZETROL [Concomitant]
     Active Substance: EZETIMIBE
  17. UPTRAVI [Suspect]
     Active Substance: SELEXIPAG
     Dosage: 200 MCG, BID
     Route: 048
     Dates: start: 20181029
  18. OPSUMIT [Suspect]
     Active Substance: MACITENTAN
     Indication: PULMONARY ARTERIAL HYPERTENSION
     Dosage: 10 MG, UNK
     Route: 048

REACTIONS (11)
  - Diarrhoea [Recovering/Resolving]
  - Headache [Recovering/Resolving]
  - Feeling abnormal [Recovering/Resolving]
  - Pain [Recovering/Resolving]
  - Nausea [Not Recovered/Not Resolved]
  - Facial pain [Recovering/Resolving]
  - Hypotension [Recovering/Resolving]
  - Gastroenteritis viral [Not Recovered/Not Resolved]
  - Insomnia [Recovered/Resolved]
  - Influenza like illness [Recovering/Resolving]
  - Dyspepsia [Not Recovered/Not Resolved]

NARRATIVE: CASE EVENT DATE: 20181031
